FAERS Safety Report 18354122 (Version 2)
Quarter: 2020Q4

REPORT INFORMATION
  Report Type: Spontaneous
  Country: JP (occurrence: JP)
  Receive Date: 20201007
  Receipt Date: 20201104
  Transmission Date: 20210114
  Serious: Yes (Other)
  Sender: FDA-Public Use
  Company Number: NVSJ2020JP006154

PATIENT
  Age: 89 Year
  Sex: Male

DRUGS (6)
  1. EYLEA [Suspect]
     Active Substance: AFLIBERCEPT
     Indication: AGE-RELATED MACULAR DEGENERATION
     Dosage: 29 TIMES FOR RIGHT EYE, 9 TIMES FOR LEFT EYE
     Route: 047
     Dates: start: 20161001, end: 20200402
  2. VEGAMOX [Concomitant]
     Active Substance: MOXIFLOXACIN HYDROCHLORIDE
     Dosage: 1 DRP, QID
     Route: 047
     Dates: start: 20200601
  3. BEOVU [Suspect]
     Active Substance: BROLUCIZUMAB-DBLL
     Indication: AGE-RELATED MACULAR DEGENERATION
     Dosage: 6 MG, QD
     Route: 031
     Dates: start: 20200601, end: 20200601
  4. PA IODO [Concomitant]
     Indication: EYE DROP INSTILLATION
     Dosage: 5 ML
     Route: 047
     Dates: start: 20171005
  5. VEGAMOX [Concomitant]
     Active Substance: MOXIFLOXACIN HYDROCHLORIDE
     Indication: INFECTION PROPHYLAXIS
     Dosage: 1 DRP, QID
     Route: 047
     Dates: start: 20171005
  6. XYLOCAINE [Concomitant]
     Active Substance: LIDOCAINE HYDROCHLORIDE
     Indication: PAIN PROPHYLAXIS
     Dosage: 2 DRP
     Route: 047
     Dates: start: 20171005

REACTIONS (17)
  - Vitreous floaters [Unknown]
  - Vitreal cells [Unknown]
  - Visual impairment [Unknown]
  - Retinal vein occlusion [Unknown]
  - Vision blurred [Unknown]
  - Visual acuity reduced [Unknown]
  - Retinal vascular disorder [Unknown]
  - Retinal vascular occlusion [Not Recovered/Not Resolved]
  - Retinal haemorrhage [Unknown]
  - Keratic precipitates [Unknown]
  - Eye haemorrhage [Unknown]
  - Vitreous opacities [Recovering/Resolving]
  - Iritis [Recovering/Resolving]
  - Vascular wall hypertrophy [Unknown]
  - Vitritis [Unknown]
  - Retinal vasculitis [Unknown]
  - Eye inflammation [Recovering/Resolving]

NARRATIVE: CASE EVENT DATE: 20200621
